FAERS Safety Report 15623003 (Version 2)
Quarter: 2019Q4

REPORT INFORMATION
  Report Type: Report from Study
  Country: US (occurrence: US)
  Receive Date: 20181115
  Receipt Date: 20191126
  Transmission Date: 20200122
  Serious: Yes (Other)
  Sender: FDA-Public Use
  Company Number: US-ACTELION-A-US2018-181678

PATIENT
  Sex: Male

DRUGS (1)
  1. OPSUMIT [Suspect]
     Active Substance: MACITENTAN
     Indication: PRODUCT USED FOR UNKNOWN INDICATION
     Dosage: 10 MG, UNK
     Route: 048

REACTIONS (9)
  - Myalgia [Unknown]
  - Malaise [Unknown]
  - Neoplasm malignant [Unknown]
  - Headache [Unknown]
  - Hypertension [Unknown]
  - Balance disorder [Unknown]
  - Eye disorder [Unknown]
  - Vision blurred [Unknown]
  - Product dose omission [Unknown]
